FAERS Safety Report 12661825 (Version 2)
Quarter: 2016Q3

REPORT INFORMATION
  Report Type: Report from Study
  Country: CA (occurrence: CA)
  Receive Date: 20160817
  Receipt Date: 20160923
  Transmission Date: 20161109
  Serious: Yes (Death)
  Sender: FDA-Public Use
  Company Number: CA-HLSUS-2016-CA-000384

PATIENT
  Age: 47 Year
  Sex: Male

DRUGS (6)
  1. CLOZARIL [Suspect]
     Active Substance: CLOZAPINE
     Dosage: 300 MG DAILY
     Route: 048
     Dates: start: 20080528
  2. BENZTROPINE [Concomitant]
     Active Substance: BENZTROPINE
     Dosage: 4 MG DAILY(2 TABLETS DAILY)
     Route: 048
  3. AXID [Concomitant]
     Active Substance: NIZATIDINE
     Dosage: 300 MG,2 CAPSULES ONCE DAILY
  4. TOPIRAMATE. [Concomitant]
     Active Substance: TOPIRAMATE
     Dosage: 100 MG,1 TABLET DAILY
     Route: 048
  5. ISOPTO ATROPINE DROPS [Concomitant]
     Dosage: 1 DROP DAILY AT BED TIME
     Route: 047
  6. BISOPROLOL [Concomitant]
     Active Substance: BISOPROLOL
     Dosage: 5 MG ONCE DAILY

REACTIONS (1)
  - Death [Fatal]

NARRATIVE: CASE EVENT DATE: 20160812
